FAERS Safety Report 15390407 (Version 1)
Quarter: 2018Q3

REPORT INFORMATION
  Report Type: Spontaneous
  Country: GB (occurrence: GB)
  Receive Date: 20180917
  Receipt Date: 20180917
  Transmission Date: 20181010
  Serious: Yes (Disabling)
  Sender: FDA-Public Use
  Company Number: GB-ROCHE-2185565

PATIENT
  Age: 70 Year
  Sex: Male

DRUGS (3)
  1. XOLAIR [Suspect]
     Active Substance: OMALIZUMAB
     Indication: URTICARIA CHRONIC
     Dosage: (3 UG/ LIT), FIRST DOSE
     Route: 058
     Dates: start: 20180328, end: 20180328
  2. XOLAIR [Suspect]
     Active Substance: OMALIZUMAB
     Dosage: (3 UG/ LIT), THIRD DOSE
     Route: 058
     Dates: start: 20180521, end: 20180521
  3. XOLAIR [Suspect]
     Active Substance: OMALIZUMAB
     Dosage: (3 UG/ LIT), SECOND DOSE
     Route: 058
     Dates: start: 20180423, end: 20180423

REACTIONS (2)
  - Cardiac valve disease [Unknown]
  - Pulmonary oedema [Unknown]

NARRATIVE: CASE EVENT DATE: 201806
